FAERS Safety Report 5333667-4 (Version None)
Quarter: 2007Q2

REPORT INFORMATION
  Report Type: 
  Country: None (occurrence: None)
  Receive Date: 20070524
  Receipt Date: 20070522
  Transmission Date: 20071010
  Serious: Yes (Other)
  Sender: FDA-Public Use
  Company Number: A0652391A

PATIENT
  Age: 59 Year
  Sex: Female

DRUGS (4)
  1. TYKERB [Suspect]
     Indication: BREAST CANCER
     Dosage: 5TAB PER DAY
     Route: 048
     Dates: start: 20070416
  2. XELODA [Concomitant]
  3. COUMADIN [Concomitant]
  4. PENICILLIN [Concomitant]

REACTIONS (7)
  - BURNING SENSATION [None]
  - DIARRHOEA [None]
  - MOUTH ULCERATION [None]
  - PAIN [None]
  - PALMAR-PLANTAR ERYTHRODYSAESTHESIA SYNDROME [None]
  - PRURITUS [None]
  - SKIN EXFOLIATION [None]
